FAERS Safety Report 6462116-8 (Version None)
Quarter: 2009Q4

REPORT INFORMATION
  Report Type: 
  Country: None (occurrence: None)
  Receive Date: 20091130
  Receipt Date: 20091116
  Transmission Date: 20100525
  Serious: Yes (Other)
  Sender: FDA-Public Use
  Company Number: GXKR2009GB12519

PATIENT

DRUGS (2)
  1. LABETALOL (NGX) [Suspect]
     Dosage: MATERNAL DOSE: 200MG THRICE DAILY
     Route: 064
  2. ADALAT - SLOW RELEASE [Interacting]
     Dosage: MATERNAL DOSE: 20MG 1 TOTAL
     Route: 064

REACTIONS (4)
  - BRADYCARDIA FOETAL [None]
  - DRUG EXPOSURE DURING PREGNANCY [None]
  - DRUG INTERACTION [None]
  - FOETAL HEART RATE DECELERATION [None]
